FAERS Safety Report 5422963-8 (Version None)
Quarter: 2007Q3

REPORT INFORMATION
  Report Type: 
  Country: None (occurrence: None)
  Receive Date: 20070820
  Receipt Date: 20070803
  Transmission Date: 20080115
  Serious: Yes (Death)
  Sender: FDA-Public Use
  Company Number: 2007RR-09207

PATIENT
  Age: 32 Year
  Sex: Male

DRUGS (4)
  1. ENALAPRIL MALEATE [Suspect]
     Indication: HYPERTENSION
     Dosage: ORAL
     Route: 048
  2. AMLODIPINE RANBAXY (AMLODIPINE BESILATE) [Concomitant]
  3. INSULIN (INSULIN) [Concomitant]
  4. METHYLPREDNISOLONE [Concomitant]

REACTIONS (17)
  - ALBUMIN URINE PRESENT [None]
  - BLOOD ALBUMIN DECREASED [None]
  - BLOOD CREATININE INCREASED [None]
  - BLOOD LACTATE DEHYDROGENASE INCREASED [None]
  - BLOOD UREA INCREASED [None]
  - BRAIN HERNIATION [None]
  - BRONCHOPNEUMONIA [None]
  - CEREBRAL INFARCTION [None]
  - ENCEPHALITIS [None]
  - FALL [None]
  - HYPERTENSION [None]
  - LABORATORY TEST ABNORMAL [None]
  - LEFT VENTRICULAR HYPERTROPHY [None]
  - NEUTROPHILIA [None]
  - URINARY INCONTINENCE [None]
  - VASCULITIS [None]
  - VASCULITIS CEREBRAL [None]
